FAERS Safety Report 12085068 (Version 2)
Quarter: 2016Q1

REPORT INFORMATION
  Report Type: Spontaneous
  Country: JP (occurrence: JP)
  Receive Date: 20160217
  Receipt Date: 20160323
  Transmission Date: 20160526
  Serious: Yes (Disabling)
  Sender: FDA-Public Use
  Company Number: JP-BRISTOL-MYERS SQUIBB COMPANY-BMS-2015-079991

PATIENT
  Age: 76 Year
  Sex: Male
  Weight: 38 kg

DRUGS (11)
  1. CETUXIMAB [Suspect]
     Active Substance: CETUXIMAB
     Dosage: 250 MG/M2, QWK
     Route: 042
     Dates: start: 20151015, end: 20151015
  2. CETUXIMAB [Suspect]
     Active Substance: CETUXIMAB
     Dosage: 340 MG, QWK
     Route: 042
     Dates: start: 20151008, end: 20151126
  3. WARFARIN K [Concomitant]
     Active Substance: WARFARIN POTASSIUM
     Indication: ATRIAL FIBRILLATION
     Dosage: 1.5 MG, QD
     Route: 065
     Dates: end: 20151205
  4. CETUXIMAB [Suspect]
     Active Substance: CETUXIMAB
     Indication: HYPOPHARYNGEAL CANCER STAGE III
     Dosage: 550 MG, QWK
     Route: 042
     Dates: start: 20151001, end: 20151001
  5. AZILSARTAN [Concomitant]
     Active Substance: AZILSARTAN KAMEDOXOMIL
     Indication: HYPERTENSION
     Dosage: 40 MG, QD
     Route: 065
     Dates: end: 20151205
  6. CETUXIMAB [Suspect]
     Active Substance: CETUXIMAB
     Dosage: 250 MG/M2, QWK
     Route: 042
     Dates: start: 20151022, end: 20151022
  7. WARFARIN K [Concomitant]
     Active Substance: WARFARIN POTASSIUM
     Route: 050
  8. CONIEL [Concomitant]
     Active Substance: BENIDIPINE HYDROCHLORIDE
     Indication: HYPERTENSION
     Dosage: 4 MG, QD
     Route: 065
     Dates: end: 20151205
  9. PONSTEL [Concomitant]
     Active Substance: MEFENAMIC ACID
     Indication: PAIN
     Dosage: 8 ML, TID
     Route: 065
     Dates: start: 20150929, end: 20151205
  10. TAKEPRON [Concomitant]
     Active Substance: LANSOPRAZOLE
     Indication: GASTRIC ULCER
     Dosage: 30 MG, QD
     Route: 065
     Dates: end: 20151205
  11. MINOMYCIN [Concomitant]
     Active Substance: MINOCYCLINE HYDROCHLORIDE
     Indication: PROPHYLAXIS
     Dosage: 100 MG, BID
     Route: 065
     Dates: start: 20150929, end: 20151205

REACTIONS (1)
  - Herpes zoster [Recovering/Resolving]

NARRATIVE: CASE EVENT DATE: 20151017
